FAERS Safety Report 8889763 (Version 2)
Quarter: 2012Q4

REPORT INFORMATION
  Report Type: 
  Country: JP (occurrence: JP)
  Receive Date: 20121107
  Receipt Date: 20121120
  Transmission Date: 20130627
  Serious: Yes (Hospitalization)
  Sender: FDA-Public Use
  Company Number: JP-SANOFI-AVENTIS-2012SA080908

PATIENT
  Age: 38 Year
  Sex: Male

DRUGS (1)
  1. ALLEGRA [Suspect]
     Indication: ALLERGIC RHINITIS
     Route: 048

REACTIONS (1)
  - Gastric haemorrhage [Recovering/Resolving]
